FAERS Safety Report 20900074 (Version 3)
Quarter: 2023Q4

REPORT INFORMATION
  Report Type: Other
  Country: US (occurrence: None)
  Receive Date: 20220601
  Receipt Date: 20231011
  Transmission Date: 20240109
  Serious: Yes (Hospitalization)
  Sender: FDA-Public Use
  Company Number: US-ROCHE-3095789

PATIENT
  Age: 5 Year
  Sex: Female
  Weight: 18.2 kg

DRUGS (8)
  1. EVRYSDI [Suspect]
     Active Substance: RISDIPLAM
     Indication: Spinal muscular atrophy
     Dosage: 4.65 MG (6.1 ML) DOSE 0.75 MG/ML 80 ML, ONCE DAILY AT SAME TIME DAILY EVERY DAY
  2. PULMOZYME [Suspect]
     Active Substance: DORNASE ALFA
     Indication: Respiration abnormal
     Dosage: 1MG/ML, INHALE 2.5 ML (2.5 MG) 2 TIMES DAILY, DECREASED TO DAILY WHEN WELL- TWICE A DAY WHEN SICK
     Route: 065
  3. ATROPINE [Concomitant]
     Active Substance: ATROPINE
  4. TYLENOL [Concomitant]
     Active Substance: ACETAMINOPHEN
  5. SODIUM CHLORIDE [Concomitant]
     Active Substance: SODIUM CHLORIDE
  6. MELATONIN [Concomitant]
     Active Substance: MELATONIN
  7. MIRALAX [Concomitant]
     Active Substance: POLYETHYLENE GLYCOL 3350
  8. ALBUTEROL [Concomitant]
     Active Substance: ALBUTEROL

REACTIONS (1)
  - Rhinovirus infection [Unknown]
